FAERS Safety Report 6169128-2 (Version None)
Quarter: 2009Q2

REPORT INFORMATION
  Report Type: 
  Country: None (occurrence: None)
  Receive Date: 20090427
  Receipt Date: 20090415
  Transmission Date: 20091009
  Serious: Yes (Other)
  Sender: FDA-Public Use
  Company Number: US-ELI_LILLY_AND_COMPANY-US200904003825

PATIENT
  Sex: Female

DRUGS (1)
  1. SYMBYAX [Suspect]
     Dosage: 1 D/F, UNK
     Dates: start: 20080101

REACTIONS (5)
  - BLOOD GLUCOSE INCREASED [None]
  - GLYCOSYLATED HAEMOGLOBIN INCREASED [None]
  - HEPATIC ENZYME INCREASED [None]
  - LIPIDS INCREASED [None]
  - WEIGHT INCREASED [None]
